FAERS Safety Report 15438450 (Version 1)
Quarter: 2018Q4

REPORT INFORMATION
  Report Type: Spontaneous
  Country: DE (occurrence: DE)
  Receive Date: 20180928
  Receipt Date: 20180928
  Transmission Date: 20190204
  Serious: Yes (Hospitalization, Other)
  Sender: FDA-Public Use
  Company Number: DE-SUN PHARMACEUTICAL INDUSTRIES LTD-2018RR-170125

PATIENT
  Age: 64 Year
  Sex: Female
  Weight: 90 kg

DRUGS (12)
  1. IBUPROFEN. [Concomitant]
     Active Substance: IBUPROFEN
     Indication: PRODUCT USED FOR UNKNOWN INDICATION
     Route: 065
  2. MACROGOL [Concomitant]
     Active Substance: POLYETHYLENE GLYCOLS
     Indication: PRODUCT USED FOR UNKNOWN INDICATION
     Route: 065
  3. TRAMADOLOR HEXAL 300 MG TABLETTEN [Suspect]
     Active Substance: TRAMADOL HYDROCHLORIDE
     Indication: PAIN
     Dosage: 300 MG, DAILY
     Route: 048
     Dates: start: 20080227, end: 20080407
  4. CELEBREX [Suspect]
     Active Substance: CELECOXIB
     Indication: PAIN
     Dosage: 100 MG
     Route: 048
     Dates: start: 20080227, end: 20080407
  5. CALCIUM/VITAMIN D [Concomitant]
     Active Substance: CALCIUM\VITAMIN D
     Indication: PRODUCT USED FOR UNKNOWN INDICATION
     Route: 065
  6. DICLOFENAC [Concomitant]
     Active Substance: DICLOFENAC
     Indication: PRODUCT USED FOR UNKNOWN INDICATION
     Route: 065
  7. L-THYROXIN [Concomitant]
     Active Substance: LEVOTHYROXINE SODIUM
     Indication: PRODUCT USED FOR UNKNOWN INDICATION
     Route: 065
  8. FLUPIRTIN MALEAT [Suspect]
     Active Substance: FLUPIRTINE MALEATE
     Indication: OSTEOPOROSIS
     Dosage: 400 MG, DAILY
     Route: 065
  9. KATADOLON S LONG 400 MG TABETTEN AWD [Suspect]
     Active Substance: FLUPIRTINE MALEATE
     Indication: PAIN
     Dosage: 400 MG, DAILY
     Route: 048
     Dates: start: 20080227, end: 20080407
  10. SIMVASTATIN. [Suspect]
     Active Substance: SIMVASTATIN
     Indication: PRODUCT USED FOR UNKNOWN INDICATION
     Dosage: UNK
     Route: 065
  11. METAMIZOLE [Concomitant]
     Active Substance: METAMIZOLE
     Indication: PRODUCT USED FOR UNKNOWN INDICATION
     Route: 065
  12. OMEPRAZOLE. [Suspect]
     Active Substance: OMEPRAZOLE
     Indication: PRODUCT USED FOR UNKNOWN INDICATION
     Route: 065

REACTIONS (8)
  - Hepatic necrosis [Recovered/Resolved with Sequelae]
  - Aspartate aminotransferase increased [Recovering/Resolving]
  - Alanine aminotransferase increased [Recovering/Resolving]
  - Blood alkaline phosphatase increased [Recovering/Resolving]
  - Drug-induced liver injury [Recovering/Resolving]
  - Chromaturia [Recovering/Resolving]
  - Fatigue [Recovering/Resolving]
  - International normalised ratio abnormal [Recovering/Resolving]

NARRATIVE: CASE EVENT DATE: 20080408
